FAERS Safety Report 4378394-5 (Version None)
Quarter: 2004Q2

REPORT INFORMATION
  Report Type: 
  Country: None (occurrence: None)
  Receive Date: 20040609
  Receipt Date: 20040527
  Transmission Date: 20050107
  Serious: Yes (Hospitalization, Other)
  Sender: FDA-Public Use
  Company Number: HQWYE124127MAY04

PATIENT
  Age: 49 Year
  Sex: Female

DRUGS (4)
  1. PREMARIN [Suspect]
     Indication: OESTROGEN REPLACEMENT THERAPY
     Dates: end: 20031001
  2. COPAXONE [Suspect]
     Indication: MULTIPLE SCLEROSIS
     Dosage: 20 MG DAILY, SUBCUTANEOUS
     Route: 058
     Dates: start: 20030423
  3. DEXTROL (GLUCOSE) [Concomitant]
  4. FLUOXETINE HCL [Concomitant]

REACTIONS (2)
  - HEPATIC ENZYME INCREASED [None]
  - RECTAL HAEMORRHAGE [None]
